FAERS Safety Report 9350355 (Version 1)
Quarter: 2013Q2

REPORT INFORMATION
  Report Type: Spontaneous
  Country: US (occurrence: US)
  Receive Date: 20130617
  Receipt Date: 20130617
  Transmission Date: 20140414
  Serious: Yes (Hospitalization, Other)
  Sender: FDA-Public Use
  Company Number: US-CELGENEUS-163-21880-13053315

PATIENT
  Age: 72 Year
  Sex: Female

DRUGS (6)
  1. REVLIMID [Suspect]
     Indication: CHRONIC LYMPHOCYTIC LEUKAEMIA
     Dosage: 10 MILLIGRAM
     Route: 048
     Dates: start: 20130417, end: 20130423
  2. ALLOPURINOL [Concomitant]
     Indication: PROPHYLAXIS
     Dosage: 300 MILLIGRAM
     Route: 065
     Dates: start: 20130411
  3. VALTREX [Concomitant]
     Indication: NEUTROPENIA
     Dosage: 1000 MILLIGRAM
     Route: 048
     Dates: start: 20130208
  4. SYNTHROID [Concomitant]
     Indication: HYPOTHYROIDISM
     Dosage: 88 MICROGRAM
     Route: 048
  5. PREDNISONE [Concomitant]
     Indication: PROPHYLAXIS
     Dosage: 5 MILLIGRAM
     Route: 048
  6. BACTRIM DS [Concomitant]
     Indication: NEUTROPENIA
     Route: 048
     Dates: start: 20130312

REACTIONS (6)
  - Tumour flare [Unknown]
  - Febrile neutropenia [Unknown]
  - Neutropenic colitis [Recovered/Resolved]
  - Motor dysfunction [Unknown]
  - Gait disturbance [Unknown]
  - Pyrexia [Recovered/Resolved]
